FAERS Safety Report 19943981 (Version 1)
Quarter: 2021Q4

REPORT INFORMATION
  Report Type: Spontaneous
  Country: US (occurrence: US)
  Receive Date: 20211007
  Receipt Date: 20211007
  Transmission Date: 20220303
  Serious: No
  Sender: FDA-Public Use
  Company Number: None

PATIENT
  Age: 53 Year
  Sex: Male

DRUGS (1)
  1. ENALAPRILAT [Suspect]
     Active Substance: ENALAPRILAT
     Dosage: ?          OTHER FREQUENCY:QID;OTHER ROUTE:IV
     Dates: start: 20210603, end: 20210604

REACTIONS (2)
  - Dyspnoea [None]
  - Angioedema [None]

NARRATIVE: CASE EVENT DATE: 20210604
